FAERS Safety Report 16915846 (Version 17)
Quarter: 2022Q1

REPORT INFORMATION
  Report Type: Report from Study
  Country: IT (occurrence: IT)
  Receive Date: 20191014
  Receipt Date: 20220321
  Transmission Date: 20220423
  Serious: Yes (Death, Life-Threatening, Hospitalization)
  Sender: FDA-Public Use
  Company Number: IT-SA-2019SA277039

PATIENT
  Age: 42 Year
  Sex: Female
  Weight: 140 kg

DRUGS (12)
  1. ALEMTUZUMAB [Suspect]
     Active Substance: ALEMTUZUMAB
     Indication: Relapsing-remitting multiple sclerosis
     Dosage: UNK
     Route: 041
     Dates: start: 20190507
  2. ALEMTUZUMAB [Suspect]
     Active Substance: ALEMTUZUMAB
     Dosage: UNK
     Route: 041
     Dates: start: 20180507
  3. KONAKION [Concomitant]
     Active Substance: PHYTONADIONE
     Indication: International normalised ratio abnormal
     Dosage: 2.5 MG, PRN
     Route: 048
     Dates: start: 201907, end: 201908
  4. KONAKION [Concomitant]
     Active Substance: PHYTONADIONE
     Indication: Cholecystitis infective
  5. PANTOPRAZOLE [Concomitant]
     Active Substance: PANTOPRAZOLE
     Indication: Gastritis prophylaxis
     Dosage: 40 MG, QD
     Route: 048
     Dates: start: 2015
  6. CHOLECALCIFEROL [Concomitant]
     Active Substance: CHOLECALCIFEROL
     Indication: Vitamin D deficiency
     Dosage: 25 GTT DROPS, QW
     Route: 048
     Dates: start: 2020
  7. FUROSEMIDE [Concomitant]
     Active Substance: FUROSEMIDE
     Indication: Lymphoedema
     Dosage: 25 MG, QD
     Route: 048
     Dates: start: 202006
  8. OMEPRAZOLE [Concomitant]
     Active Substance: OMEPRAZOLE
     Indication: Gastrooesophageal reflux prophylaxis
     Dosage: 40 MG, QD
     Route: 042
     Dates: start: 201908, end: 201908
  9. DIOSMIN [Concomitant]
     Active Substance: DIOSMIN
     Indication: Lymphoedema
     Dosage: 500 MG, QD
     Route: 048
     Dates: start: 202005
  10. METHYLPREDNISOLONE [Concomitant]
     Active Substance: METHYLPREDNISOLONE
     Indication: Premedication
     Dosage: 250 MG, QD
     Route: 042
     Dates: start: 20190509, end: 20190509
  11. RANITIDINE [Concomitant]
     Active Substance: RANITIDINE
     Indication: Premedication
     Dosage: 150 MG, QD
     Route: 048
     Dates: start: 20190507, end: 20190509
  12. FERROUS SULFATE [Concomitant]
     Active Substance: FERROUS SULFATE
     Indication: Mineral supplementation
     Dosage: 80 MG, QD
     Route: 048
     Dates: start: 201908

REACTIONS (11)
  - Sepsis [Fatal]
  - Sepsis [Recovered/Resolved]
  - Cholecystitis infective [Recovered/Resolved]
  - Perihepatic abscess [Recovered/Resolved]
  - Erysipelas [Recovered/Resolved]
  - Erysipelas [Not Recovered/Not Resolved]
  - Pulmonary embolism [Recovered/Resolved]
  - Haematuria [Recovered/Resolved]
  - Candida infection [Recovered/Resolved]
  - Erysipelas [Recovered/Resolved]
  - Anaemia [Recovered/Resolved]

NARRATIVE: CASE EVENT DATE: 20190719
